FAERS Safety Report 18405009 (Version 1)
Quarter: 2020Q4

REPORT INFORMATION
  Report Type: Spontaneous
  Country: US (occurrence: US)
  Receive Date: 20201020
  Receipt Date: 20201020
  Transmission Date: 20210114
  Serious: Yes (Death)
  Sender: FDA-Public Use
  Company Number: None

PATIENT
  Age: 61 Year
  Sex: Male
  Weight: 88 kg

DRUGS (1)
  1. REMDESIVIR  (EUA) (REMDESIVIR) (EUA)) [Suspect]
     Active Substance: REMDESIVIR
     Indication: COVID-19
     Route: 042
     Dates: start: 20200718, end: 20200723

REACTIONS (4)
  - Cerebrovascular accident [None]
  - Thrombectomy [None]
  - Transient ischaemic attack [None]
  - General physical health deterioration [None]

NARRATIVE: CASE EVENT DATE: 20200720
